FAERS Safety Report 8357195-7 (Version None)
Quarter: 2012Q2

REPORT INFORMATION
  Report Type: 
  Country: None (occurrence: None)
  Receive Date: 20120514
  Receipt Date: 20120502
  Transmission Date: 20120825
  Serious: Yes (Other)
  Sender: FDA-Public Use
  Company Number: US-PFIZER INC-2012085234

PATIENT
  Sex: Female

DRUGS (2)
  1. EFFEXOR XR [Suspect]
     Dosage: UNK
     Route: 065
  2. PROTONIX [Suspect]
     Dosage: UNK
     Route: 065

REACTIONS (5)
  - ABDOMINAL DISCOMFORT [None]
  - CALCINOSIS [None]
  - HEADACHE [None]
  - LOSS OF CONSCIOUSNESS [None]
  - HYPERTENSION [None]
